FAERS Safety Report 4282591-7 (Version None)
Quarter: 2004Q1

REPORT INFORMATION
  Report Type: 
  Country: None (occurrence: None)
  Receive Date: 20040130
  Receipt Date: 20020417
  Transmission Date: 20041129
  Serious: Yes (Hospitalization)
  Sender: FDA-Public Use
  Company Number: US-BRISTOL-MYERS SQUIBB COMPANY-11828118

PATIENT
  Age: 52 Year
  Sex: Male

DRUGS (7)
  1. SERZONE [Suspect]
     Indication: DEPRESSION
     Dosage: FIRST SEEN IN MED RECORDS 01-JUN-99,STILL MENTIONED IN MED RECORDS FROM 23-JUL-02
     Route: 048
  2. PREVACID [Concomitant]
  3. XANAX [Concomitant]
     Dosage: 0.5 MG (1/2 TAB)
  4. AMBIEN [Concomitant]
     Dosage: AT BEDTIME
  5. LANOXIN [Concomitant]
  6. VIAGRA [Concomitant]
  7. HYDROXYZINE [Concomitant]
     Dosage: AT BEDTIME

REACTIONS (11)
  - ABDOMINAL PAIN [None]
  - ANXIETY [None]
  - ASTHENIA [None]
  - CHEST PAIN [None]
  - CONSTIPATION [None]
  - DIARRHOEA [None]
  - DIZZINESS [None]
  - HAEMATURIA [None]
  - HYPERHIDROSIS [None]
  - NAUSEA [None]
  - PEPTIC ULCER [None]
